FAERS Safety Report 20939380 (Version 1)
Quarter: 2022Q2

REPORT INFORMATION
  Report Type: Spontaneous
  Country: US (occurrence: US)
  Receive Date: 20220609
  Receipt Date: 20220609
  Transmission Date: 20220721
  Serious: No
  Sender: FDA-Public Use
  Company Number: US-PFIZER INC-202200798109

PATIENT
  Age: 48 Year
  Sex: Female
  Weight: 67.13 kg

DRUGS (1)
  1. PAXLOVID [Suspect]
     Active Substance: NIRMATRELVIR\RITONAVIR
     Indication: COVID-19 treatment
     Dosage: UNK
     Dates: start: 20220602

REACTIONS (4)
  - Skin reaction [Unknown]
  - Taste disorder [Unknown]
  - Diarrhoea [Unknown]
  - Rash macular [Unknown]

NARRATIVE: CASE EVENT DATE: 20220602
